FAERS Safety Report 9417048 (Version 1)
Quarter: 2013Q3

REPORT INFORMATION
  Report Type: Spontaneous
  Country: US (occurrence: None)
  Receive Date: 20130722
  Receipt Date: 20130722
  Transmission Date: 20140515
  Serious: Yes (Death, Hospitalization)
  Sender: FDA-Public Use
  Company Number: DAV-AE-CLO-13-04

PATIENT
  Age: 51 Year
  Sex: Male

DRUGS (4)
  1. CLONIDINE [Suspect]
     Indication: DETOXIFICATION
  2. PROPOFOL [Concomitant]
  3. SEVOFLURANE [Concomitant]
  4. NALOXONE [Concomitant]

REACTIONS (4)
  - Ventricular fibrillation [None]
  - Agitation [None]
  - Hypertension [None]
  - Hypoxic-ischaemic encephalopathy [None]
